FAERS Safety Report 4871059-2 (Version None)
Quarter: 2005Q4

REPORT INFORMATION
  Report Type: 
  Country: None (occurrence: None)
  Receive Date: 20051229
  Receipt Date: 20051212
  Transmission Date: 20060501
  Serious: Yes (Hospitalization)
  Sender: FDA-Public Use
  Company Number: IT200512002031

PATIENT
  Age: 57 Year
  Sex: Female

DRUGS (2)
  1. GEMCITABINE HYDROCHLORIDE (GEMCITABINE HYDROCHLORIDE) VIAL [Suspect]
     Indication: BLADDER CANCER
     Dosage: 1000 MG/M2, INTRAVENOUS
     Route: 042
     Dates: start: 20051107, end: 20051107
  2. CISPLATIN (CISPLATIN) VIAL [Suspect]
     Indication: BLADDER CANCER
     Dosage: 70 MG/M2, OTHER, INTRAVENOUS
     Route: 042
     Dates: start: 20051108, end: 20051108

REACTIONS (1)
  - PULMONARY EMBOLISM [None]
